FAERS Safety Report 18964984 (Version 1)
Quarter: 2021Q1

REPORT INFORMATION
  Report Type: Spontaneous
  Country: US (occurrence: US)
  Receive Date: 20210303
  Receipt Date: 20210303
  Transmission Date: 20210420
  Serious: No
  Sender: FDA-Public Use
  Company Number: US-AMNEAL PHARMACEUTICALS-2020-AMRX-01785

PATIENT
  Age: 77 Year
  Sex: Male

DRUGS (5)
  1. RYTARY [Suspect]
     Active Substance: CARBIDOPA\LEVODOPA
     Dosage: 48.75/195 MG, 1 CAPSULES, 3 /DAY
     Route: 065
  2. INBRIJA [Suspect]
     Active Substance: LEVODOPA
     Indication: THERAPEUTIC RESPONSE SHORTENED
     Dosage: 42 MG, 2 CAPSULES, AS NEEDED
     Dates: start: 20200602
  3. RASAGILINE. [Concomitant]
     Active Substance: RASAGILINE
     Indication: PRODUCT USED FOR UNKNOWN INDICATION
     Dosage: UNK
     Route: 065
  4. INBRIJA [Suspect]
     Active Substance: LEVODOPA
     Indication: PARKINSON^S DISEASE
  5. RYTARY [Suspect]
     Active Substance: CARBIDOPA\LEVODOPA
     Indication: PRODUCT USED FOR UNKNOWN INDICATION
     Dosage: 61.25/245 MG, 1 CAPSULES, 1 /DAY
     Route: 065

REACTIONS (3)
  - Cough [Unknown]
  - Dyskinesia [Unknown]
  - Therapeutic response shortened [Unknown]

NARRATIVE: CASE EVENT DATE: 20200615
